FAERS Safety Report 4689174-5 (Version None)
Quarter: 2005Q2

REPORT INFORMATION
  Report Type: 
  Country: None (occurrence: None)
  Receive Date: 20050613
  Receipt Date: 20050601
  Transmission Date: 20051028
  Serious: Yes (Hospitalization)
  Sender: FDA-Public Use
  Company Number: 2005UW08489

PATIENT
  Age: 43 Year
  Sex: Male

DRUGS (2)
  1. SEROQUEL [Suspect]
     Route: 048
  2. SEROQUEL [Suspect]
     Dosage: 3000 - 4000 MG
     Route: 048

REACTIONS (3)
  - HEPATIC ENZYME INCREASED [None]
  - OVERDOSE [None]
  - RHABDOMYOLYSIS [None]
